FAERS Safety Report 8251481-7 (Version None)
Quarter: 2012Q2

REPORT INFORMATION
  Report Type: 
  Country: None (occurrence: None)
  Receive Date: 20120402
  Receipt Date: 20120323
  Transmission Date: 20120825
  Serious: Yes (Hospitalization)
  Sender: FDA-Public Use
  Company Number: JP-VERTEX PHARMACEUTICALS INC.-AE-2012-004425

PATIENT
  Age: 60 Year
  Sex: Male

DRUGS (10)
  1. PEGINTERFERON [Concomitant]
     Indication: HEPATITIS C
     Route: 051
     Dates: start: 20120229, end: 20120314
  2. VALSARTAN  AND HYDROCHLOROTHIAZIDE [Concomitant]
     Route: 048
  3. BEZAFIBRATE [Concomitant]
     Route: 048
  4. TELAVIC (TELAPREVIR) [Suspect]
     Indication: HEPATITIS C
     Route: 048
     Dates: start: 20120229, end: 20120316
  5. RIBAVIRIN [Concomitant]
     Route: 048
     Dates: start: 20120317
  6. RIBAVIRIN [Concomitant]
     Indication: HEPATITIS C
     Route: 048
     Dates: start: 20120229, end: 20120316
  7. URSO 250 [Concomitant]
     Route: 048
  8. PEGINTERFERON [Concomitant]
     Route: 051
     Dates: start: 20120321
  9. EPINAZION [Concomitant]
     Route: 048
  10. TELAVIC (TELAPREVIR) [Suspect]
     Route: 048
     Dates: start: 20120317

REACTIONS (3)
  - BLOOD CREATININE INCREASED [None]
  - MALAISE [None]
  - HYPERURICAEMIA [None]
